FAERS Safety Report 7118181-8 (Version None)
Quarter: 2010Q4

REPORT INFORMATION
  Report Type: 
  Country: None (occurrence: None)
  Receive Date: 20101123
  Receipt Date: 20101115
  Transmission Date: 20110411
  Serious: Yes (Hospitalization)
  Sender: FDA-Public Use
  Company Number: KR-BRISTOL-MYERS SQUIBB COMPANY-15396468

PATIENT
  Age: 35 Year
  Sex: Female
  Weight: 44 kg

DRUGS (3)
  1. CETUXIMAB [Suspect]
     Indication: GASTROOESOPHAGEAL CANCER
     Dosage: STRENGTH:5MG/ML,RECENT INFUSION ON 12NOV2010,NO OF INFUSIONS:6.
     Route: 042
     Dates: start: 20101008
  2. CISPLATIN [Suspect]
     Indication: GASTROOESOPHAGEAL CANCER
     Dosage: ON DAY 1 OF CYCLE.MOST RECENT INFUSION ON 29OCT2010.
     Route: 042
     Dates: start: 20101008
  3. XELODA [Suspect]
     Indication: GASTROOESOPHAGEAL CANCER
     Dosage: CAPECITABINE TABLET.ON DAY 1-15.
     Route: 048
     Dates: start: 20101008, end: 20101110

REACTIONS (1)
  - DECREASED APPETITE [None]
